FAERS Safety Report 4507915-4 (Version None)
Quarter: 2004Q4

REPORT INFORMATION
  Report Type: 
  Country: None (occurrence: None)
  Receive Date: 20041123
  Receipt Date: 20041116
  Transmission Date: 20050328
  Serious: Yes (Hospitalization)
  Sender: FDA-Public Use
  Company Number: US-ROCHE-386602

PATIENT
  Age: 61 Year
  Sex: Male

DRUGS (1)
  1. ROCEPHIN [Suspect]
     Indication: OSTEOMYELITIS
     Dosage: DRUG NAME REPORTED AS ROCEPHIN FROZEN SOLUTION.
     Route: 042
     Dates: start: 20041105, end: 20041111

REACTIONS (5)
  - BLOOD PRESSURE INCREASED [None]
  - CHEST WALL PAIN [None]
  - NAUSEA [None]
  - PYREXIA [None]
  - TREMOR [None]
